FAERS Safety Report 4916415-9 (Version None)
Quarter: 2006Q1

REPORT INFORMATION
  Report Type: 
  Country: None (occurrence: None)
  Receive Date: 20060214
  Receipt Date: 20060126
  Transmission Date: 20060701
  Serious: Yes (Hospitalization, Other)
  Sender: FDA-Public Use
  Company Number: CA200512001574

PATIENT
  Age: 67 Year
  Sex: Female

DRUGS (16)
  1. FORTEO [Suspect]
     Indication: OSTEOPOROSIS
     Dosage: 20 UG, DAILY (1/D)
     Dates: start: 20050411, end: 20051231
  2. FORTEO PEN (FORTEO PEN) [Concomitant]
  3. CARDIZEM [Concomitant]
  4. IMDUR [Concomitant]
  5. NITRO (GLYCERYL TRINITRATE) [Concomitant]
  6. D (ERGOCALCIFEROL) [Concomitant]
  7. CALCIUM (CALCIUM) [Concomitant]
  8. NEXIUM [Concomitant]
  9. ATIVAN [Concomitant]
  10. SINGULAIR [Concomitant]
  11. NOVASEN (ACETYLSALICYLIC ACID) [Concomitant]
  12. ATROVENT [Concomitant]
  13. VENTOLIN /00139501/ (SALBUTAMOL) [Concomitant]
  14. FLOVENT [Concomitant]
  15. PREDNISONE TAB [Concomitant]
  16. SUPEUDOL (OXYCODONE HYDROCHLORIDE) [Concomitant]

REACTIONS (3)
  - COLLAPSE OF LUNG [None]
  - PAIN [None]
  - PNEUMONIA [None]
